FAERS Safety Report 21094635 (Version 1)
Quarter: 2022Q3

REPORT INFORMATION
  Report Type: Other
  Country: CA (occurrence: CA)
  Receive Date: 20220718
  Receipt Date: 20220718
  Transmission Date: 20221027
  Serious: Yes (Other)
  Sender: FDA-Public Use
  Company Number: CA-GLENMARK PHARMACEUTICALS-2022GMK073743

PATIENT

DRUGS (17)
  1. TOPIRAMATE [Suspect]
     Active Substance: TOPIRAMATE
     Indication: Migraine
     Dosage: UNK
     Route: 065
  2. CANDESARTAN [Suspect]
     Active Substance: CANDESARTAN
     Indication: Migraine
     Dosage: 8 MILLIGRAM
     Route: 048
  3. CANDESARTAN [Suspect]
     Active Substance: CANDESARTAN
     Indication: Blood pressure abnormal
     Dosage: 16 MILLIGRAM
     Route: 048
  4. CANDESARTAN [Suspect]
     Active Substance: CANDESARTAN
     Dosage: 8 MILLIGRAM
     Route: 048
  5. CANDESARTAN [Suspect]
     Active Substance: CANDESARTAN
     Dosage: 8 MILLIGRAM
     Route: 048
  6. CANDESARTAN [Suspect]
     Active Substance: CANDESARTAN
     Dosage: 16 MILLIGRAM
     Route: 048
  7. PANTOPRAZOLE [Suspect]
     Active Substance: PANTOPRAZOLE
     Indication: Migraine
     Dosage: 40.0 MILLIGRAM (2 EVERY 1 DAYS)
     Route: 065
  8. ERENUMAB-AOOE [Suspect]
     Active Substance: ERENUMAB-AOOE
     Indication: Migraine
     Dosage: 140.0 MILLIGRAM (1 EVERY 1 MONTHS)
     Route: 058
  9. FLUOXETINE HYDROCHLORIDE [Suspect]
     Active Substance: FLUOXETINE HYDROCHLORIDE
     Indication: Migraine
     Dosage: 20 MILLIGRAM
     Route: 065
  10. FERROUS FUMARATE [Concomitant]
     Active Substance: FERROUS FUMARATE
     Indication: Product used for unknown indication
     Dosage: 300 MILLIGRAM
     Route: 065
  11. FERROUS FUMARATE [Concomitant]
     Active Substance: FERROUS FUMARATE
     Dosage: 300 MILLIGRAM
     Route: 065
  12. MODAFINIL [Concomitant]
     Active Substance: MODAFINIL
     Indication: Product used for unknown indication
     Dosage: 100 MILLIGRAM ( 2 EVERY 1 DAYS)
     Route: 065
  13. MODAFINIL [Concomitant]
     Active Substance: MODAFINIL
     Dosage: 100 MILLIGRAM (2 EVERY 1 DAYS)
     Route: 065
  14. NAPROXEN [Concomitant]
     Active Substance: NAPROXEN
     Indication: Product used for unknown indication
     Dosage: 500 MILLIGRAM
     Route: 065
  15. NAPROXEN [Concomitant]
     Active Substance: NAPROXEN
     Dosage: 500 MILLIGRAM
     Route: 065
  16. OSTO-D2 [Concomitant]
     Indication: Product used for unknown indication
     Dosage: UNK (1 EVERY 1 WEEKS)
     Route: 065
  17. OSTO-D2 [Concomitant]
     Dosage: UNK (1 EVERY 1 WEEKS)
     Route: 065

REACTIONS (14)
  - Blood pressure measurement [Unknown]
  - Drug intolerance [Unknown]
  - Dysstasia [Unknown]
  - Heart rate abnormal [Unknown]
  - Hypertension [Unknown]
  - Pain of skin [Unknown]
  - Off label use [Unknown]
  - Eye pain [Unknown]
  - Headache [Unknown]
  - Photophobia [Unknown]
  - Swelling face [Unknown]
  - Hypoaesthesia oral [Unknown]
  - Nausea [Unknown]
  - Therapeutic product effect decreased [Unknown]
